FAERS Safety Report 7105565-7 (Version None)
Quarter: 2010Q4

REPORT INFORMATION
  Report Type: 
  Country: None (occurrence: None)
  Receive Date: 20101116
  Receipt Date: 20101110
  Transmission Date: 20110411
  Serious: Yes (Other)
  Sender: FDA-Public Use
  Company Number: JP-B.I. PHARMACEUTICALS,INC./RIDGEFIELD-2010-BP-10881NB

PATIENT
  Sex: Female
  Weight: 76.6 kg

DRUGS (5)
  1. MICARDIS [Suspect]
     Indication: HYPERTENSION
     Dosage: 40 MG
     Route: 048
     Dates: start: 20100623, end: 20101101
  2. LIPITOR [Suspect]
     Indication: HYPERCHOLESTEROLAEMIA
     Dosage: 5 MG
     Route: 048
     Dates: start: 20100623, end: 20100922
  3. LIPITOR [Suspect]
     Dosage: 5 MG
     Route: 048
     Dates: start: 20100811, end: 20100922
  4. LANTUS [Concomitant]
     Indication: DIABETES MELLITUS
     Dosage: 12 U
     Route: 058
     Dates: start: 20100701
  5. HUMALOG [Concomitant]
     Indication: DIABETES MELLITUS
     Dosage: 18 U
     Route: 058
     Dates: start: 20100628

REACTIONS (1)
  - PANCYTOPENIA [None]
